FAERS Safety Report 6981280-5 (Version None)
Quarter: 2010Q3

REPORT INFORMATION
  Report Type: 
  Country: None (occurrence: None)
  Receive Date: 20100827
  Receipt Date: 20090721
  Transmission Date: 20110219
  Serious: Yes (Other)
  Sender: FDA-Public Use
  Company Number: 200915853

PATIENT
  Age: 64 Year
  Sex: Female
  Weight: 82 kg

DRUGS (18)
  1. VFEND [Suspect]
     Indication: OSTEOMYELITIS
     Dosage: 320 MG, 2X/DAY, INTRAVENOUS
     Route: 042
     Dates: start: 20090423
  2. ZYPREXA [Concomitant]
  3. MONTELUKAST SODIUM [Concomitant]
  4. PAXIL [Concomitant]
  5. VALSARTAN [Concomitant]
  6. ALBUTEROL [Concomitant]
  7. NASONEX [Concomitant]
  8. BACLOFEN [Concomitant]
  9. ADVAIR DISKUS 100/50 [Concomitant]
  10. FERROUS SULFATE TAB [Concomitant]
  11. NEXIUM [Concomitant]
  12. MESTINON [Concomitant]
  13. IMIPRAMINE [Concomitant]
  14. CLARITIN [Concomitant]
  15. PROVIGIL [Concomitant]
  16. DITROPAN XL [Concomitant]
  17. VICODIN [Concomitant]
  18. ESTRACE [Concomitant]

REACTIONS (5)
  - ABNORMAL BEHAVIOUR [None]
  - AGITATION [None]
  - ANXIETY [None]
  - MEDICATION ERROR [None]
  - SUICIDAL IDEATION [None]
